FAERS Safety Report 10143289 (Version 1)
Quarter: 2014Q2

REPORT INFORMATION
  Report Type: Spontaneous
  Country: IT (occurrence: IT)
  Receive Date: 20140430
  Receipt Date: 20140430
  Transmission Date: 20141212
  Serious: Yes (Hospitalization)
  Sender: FDA-Public Use
  Company Number: IT-GE HEALTHCARE MEDICAL DIAGNOSTICS-VISP-PR-1404S-0192

PATIENT
  Age: 55 Year
  Sex: Female
  Weight: 84 kg

DRUGS (6)
  1. VISIPAQUE [Suspect]
     Indication: PRODUCT USED FOR UNKNOWN INDICATION
     Route: 042
     Dates: start: 20140418, end: 20140418
  2. VISIPAQUE [Suspect]
     Indication: DIAGNOSTIC PROCEDURE
  3. CETIRIZINA [Concomitant]
     Indication: CONTRAST MEDIA ALLERGY
     Route: 048
     Dates: start: 20140417, end: 20140417
  4. CETIRIZINA [Concomitant]
     Route: 048
     Dates: start: 20140418, end: 20140418
  5. DELTACORTENE [Concomitant]
     Indication: CONTRAST MEDIA ALLERGY
     Route: 048
     Dates: start: 20140417, end: 20140417
  6. DELTACORTENE [Concomitant]
     Route: 048
     Dates: start: 20140418, end: 20140418

REACTIONS (3)
  - Obstructive airways disorder [Recovering/Resolving]
  - Dyspnoea [Recovering/Resolving]
  - Chest pain [Recovering/Resolving]
